FAERS Safety Report 6790963-1 (Version None)
Quarter: 2010Q2

REPORT INFORMATION
  Report Type: 
  Country: None (occurrence: None)
  Receive Date: 20100624
  Receipt Date: 20100618
  Transmission Date: 20101027
  Serious: Yes (Life-Threatening, Hospitalization)
  Sender: FDA-Public Use
  Company Number: JP-MERCK-1004USA03961

PATIENT
  Age: 79 Year
  Sex: Female
  Weight: 55 kg

DRUGS (8)
  1. JANUVIA [Suspect]
     Route: 048
     Dates: start: 20100316, end: 20100419
  2. AMARYL [Suspect]
     Indication: DIABETES MELLITUS
     Route: 048
     Dates: start: 20090818, end: 20100419
  3. DIBETOS [Suspect]
     Indication: DIABETES MELLITUS
     Route: 048
     Dates: start: 20090116, end: 20100419
  4. AMLODIPINE BESYLATE [Concomitant]
     Indication: HYPERTENSION
     Route: 048
     Dates: start: 20090818, end: 20100419
  5. ARTIONE [Concomitant]
     Indication: HYPERTENSION
     Route: 048
     Dates: start: 20090303, end: 20100419
  6. LIPIDIL [Concomitant]
     Indication: HYPERLIPIDAEMIA
     Route: 048
     Dates: start: 20090116, end: 20100419
  7. VESICARE [Concomitant]
     Indication: HYPERTONIC BLADDER
     Route: 048
     Dates: start: 20091208, end: 20100419
  8. GLYCYRRHIZA KORSHINSKYI [Concomitant]
     Indication: GASTRITIS
     Route: 048
     Dates: start: 20090116, end: 20100419

REACTIONS (4)
  - ALTERED STATE OF CONSCIOUSNESS [None]
  - COLD SWEAT [None]
  - HYPOGLYCAEMIA [None]
  - TREMOR [None]
